FAERS Safety Report 4493580-1 (Version None)
Quarter: 2004Q4

REPORT INFORMATION
  Report Type: 
  Country: None (occurrence: None)
  Receive Date: 20041105
  Receipt Date: 20031013
  Transmission Date: 20050328
  Serious: No
  Sender: FDA-Public Use
  Company Number: US-BRISTOL-MYERS SQUIBB COMPANY-12409884

PATIENT
  Age: 3 Decade
  Sex: Female

DRUGS (1)
  1. MEGACE [Suspect]

REACTIONS (1)
  - ACCIDENTAL EXPOSURE [None]
